FAERS Safety Report 5164025-3 (Version None)
Quarter: 2006Q4

REPORT INFORMATION
  Report Type: 
  Country: None (occurrence: None)
  Receive Date: 20061204
  Receipt Date: 20061026
  Transmission Date: 20070319
  Serious: Yes (Hospitalization)
  Sender: FDA-Public Use
  Company Number: DE-BOEHRINGER INGELHEIM PHARMACEUTICALS, INC.-2006-DE-05702DE

PATIENT
  Sex: Female
  Weight: 67 kg

DRUGS (5)
  1. SIFROL [Suspect]
     Indication: PARKINSON'S DISEASE
     Route: 048
     Dates: start: 20050708
  2. ATACAND HCT [Concomitant]
     Indication: HYPERTENSION
     Dosage: 16/12,5 - 1X1/2
     Route: 048
     Dates: start: 20050708
  3. ATACAND HCT [Concomitant]
     Indication: CORONARY ARTERY DISEASE
  4. AMANTADINE HCL [Concomitant]
     Indication: PARKINSON'S DISEASE
     Route: 048
     Dates: start: 20050708
  5. PENTAERYTHRITOL TETRANITRATE [Concomitant]
     Indication: ANGINA PECTORIS
     Route: 048
     Dates: start: 20050708

REACTIONS (5)
  - AGITATION [None]
  - ANGINA PECTORIS [None]
  - ARTHRALGIA [None]
  - INTERCOSTAL NEURALGIA [None]
  - MYALGIA [None]
